FAERS Safety Report 6588883-0 (Version None)
Quarter: 2010Q1

REPORT INFORMATION
  Report Type: 
  Country: None (occurrence: None)
  Receive Date: 20100218
  Receipt Date: 20100212
  Transmission Date: 20100710
  Serious: Yes (Death)
  Sender: FDA-Public Use
  Company Number: B0633221A

PATIENT
  Sex: Female

DRUGS (14)
  1. AUGMENTIN [Suspect]
     Indication: ESCHERICHIA URINARY TRACT INFECTION
     Route: 048
     Dates: start: 20100121, end: 20100127
  2. BACTRIM DS [Suspect]
     Indication: ESCHERICHIA URINARY TRACT INFECTION
     Dosage: 2UNIT TWICE PER DAY
     Route: 048
     Dates: start: 20100130, end: 20100201
  3. LYRICA [Concomitant]
     Route: 065
  4. TARDYFERON [Concomitant]
     Route: 065
  5. INIPOMP [Concomitant]
     Route: 065
  6. TAHOR [Concomitant]
     Route: 065
  7. PREVISCAN [Concomitant]
     Route: 065
  8. LASILIX [Concomitant]
     Route: 065
  9. TIORFAN [Concomitant]
     Route: 065
  10. HUMALOG [Concomitant]
     Route: 065
  11. LANTUS [Concomitant]
     Route: 065
  12. TERCIAN [Concomitant]
     Route: 065
  13. FORLAX [Concomitant]
     Route: 065
  14. KETUM [Concomitant]
     Route: 065

REACTIONS (14)
  - ALTERED STATE OF CONSCIOUSNESS [None]
  - BRONCHIAL OBSTRUCTION [None]
  - DERMATITIS BULLOUS [None]
  - ERYTHEMA [None]
  - GENERAL PHYSICAL HEALTH DETERIORATION [None]
  - LYMPHOPENIA [None]
  - NIKOLSKY'S SIGN [None]
  - PALMAR-PLANTAR ERYTHRODYSAESTHESIA SYNDROME [None]
  - RASH MACULAR [None]
  - RENAL FAILURE [None]
  - RESPIRATORY DISORDER [None]
  - SKIN DISORDER [None]
  - SKIN EROSION [None]
  - TOXIC EPIDERMAL NECROLYSIS [None]
